FAERS Safety Report 4902816-1 (Version None)
Quarter: 2006Q1

REPORT INFORMATION
  Report Type: 
  Country: None (occurrence: None)
  Receive Date: 20060207
  Receipt Date: 20051024
  Transmission Date: 20060701
  Serious: Yes (Death)
  Sender: FDA-Public Use
  Company Number: GB-JNJFOC-20051003438

PATIENT
  Sex: Female

DRUGS (19)
  1. TRAMADOL HCL [Suspect]
     Dosage: 1 TABLET
     Route: 048
  2. TRAMADOL HCL [Suspect]
     Dosage: 4 TABLETS
     Route: 048
  3. TRAMADOL HCL [Suspect]
     Dosage: 3 TABLETS
     Route: 048
  4. AMITRIPTYLINE HCL [Interacting]
     Dosage: AT NIGHT
     Route: 065
  5. AMITRIPTYLINE HCL [Interacting]
     Indication: DRUG USE FOR UNKNOWN INDICATION
     Route: 065
  6. FYBOGEL [Concomitant]
     Route: 065
  7. MORPHINE SULFATE [Concomitant]
     Route: 065
  8. MORPHINE SULFATE [Concomitant]
     Route: 065
  9. CELECOXIB [Concomitant]
     Route: 065
  10. BACLOFEN [Concomitant]
     Dosage: ONE AND A HALF
     Route: 065
  11. BACLOFEN [Concomitant]
     Route: 065
  12. CO-TENIDONE [Concomitant]
     Route: 065
  13. CO-TENIDONE [Concomitant]
     Route: 065
  14. SIMVASTATIN [Concomitant]
     Route: 065
  15. TEMAZEPAM [Concomitant]
     Dosage: AT NIGHT
     Route: 065
  16. CO-PROXAMOL [Concomitant]
     Route: 065
  17. CO-PROXAMOL [Concomitant]
     Dosage: 32.5 MG + 325MG TAKE 1 OR 2
     Route: 065
  18. LEVOTHYROXINE SODIUM [Concomitant]
     Route: 065
  19. ASPIRIN [Concomitant]
     Route: 065

REACTIONS (11)
  - CONFUSIONAL STATE [None]
  - CONVULSION [None]
  - DEPRESSED LEVEL OF CONSCIOUSNESS [None]
  - DRUG INTERACTION [None]
  - HALLUCINATION [None]
  - HYPERHIDROSIS [None]
  - PNEUMONIA ASPIRATION [None]
  - PYREXIA [None]
  - SEROTONIN SYNDROME [None]
  - TREMOR [None]
  - VOMITING [None]
